FAERS Safety Report 4640123-5 (Version None)
Quarter: 2005Q1

REPORT INFORMATION
  Report Type: 
  Country: None (occurrence: None)
  Receive Date: 20050328
  Receipt Date: 20050203
  Transmission Date: 20050727
  Serious: No
  Sender: FDA-Public Use
  Company Number: USA050289815

PATIENT
  Age: 12 Year
  Sex: Male

DRUGS (4)
  1. STRATTERA [Suspect]
     Indication: ATTENTION DEFICIT/HYPERACTIVITY DISORDER
     Dosage: 60 MG/ 1 DAY
     Dates: start: 20030101
  2. PREVACID [Concomitant]
  3. FLONASE [Concomitant]
  4. MIRALAX [Concomitant]

REACTIONS (2)
  - ANOREXIA [None]
  - STOMACH DISCOMFORT [None]
